FAERS Safety Report 5382101-7 (Version None)
Quarter: 2007Q3

REPORT INFORMATION
  Report Type: 
  Country: None (occurrence: None)
  Receive Date: 20070709
  Receipt Date: 20070703
  Transmission Date: 20080115
  Serious: Yes (Hospitalization, Other)
  Sender: FDA-Public Use
  Company Number: US-ASTRAZENECA-2007UW09630

PATIENT
  Age: 42 Year
  Sex: Male

DRUGS (3)
  1. SEROQUEL [Suspect]
     Indication: BIPOLAR DISORDER
     Dosage: ONE TO TWO TABLETS
     Route: 048
     Dates: start: 20070112, end: 20070328
  2. CARISOPRODOL [Concomitant]
     Route: 048
     Dates: start: 20070301
  3. XANAX [Concomitant]
     Indication: ANXIETY
     Dates: start: 20070122

REACTIONS (8)
  - ASTHENIA [None]
  - CONFUSIONAL STATE [None]
  - DEPRESSED LEVEL OF CONSCIOUSNESS [None]
  - DISORIENTATION [None]
  - FALL [None]
  - HYPONATRAEMIA [None]
  - SKIN LACERATION [None]
  - WATER INTOXICATION [None]
